FAERS Safety Report 9360012 (Version 2)
Quarter: 2013Q3

REPORT INFORMATION
  Report Type: Spontaneous
  Country: JP (occurrence: JP)
  Receive Date: 20130621
  Receipt Date: 20130703
  Transmission Date: 20140515
  Serious: Yes (Death, Hospitalization)
  Sender: FDA-Public Use
  Company Number: PHHY2013JP063074

PATIENT
  Age: 34 Year
  Sex: Male

DRUGS (4)
  1. CICLOSPORIN [Suspect]
     Indication: NEPHROTIC SYNDROME
     Route: 048
  2. PREDNISOLONE [Concomitant]
     Indication: NEPHROTIC SYNDROME
     Dosage: 25 MG, UNK
     Route: 048
  3. WARFARIN [Concomitant]
     Indication: MYOCARDIAL INFARCTION
     Route: 048
  4. GENERAL ANESTHETICS [Concomitant]

REACTIONS (10)
  - Disseminated cryptococcosis [Fatal]
  - Erythema [Fatal]
  - Pain in extremity [Fatal]
  - Rash pustular [Fatal]
  - Skin ulcer [Fatal]
  - General physical health deterioration [Fatal]
  - Skin lesion [Fatal]
  - Subcutaneous abscess [Fatal]
  - Pyrexia [Fatal]
  - Skin infection [Fatal]
